FAERS Safety Report 13290739 (Version 1)
Quarter: 2017Q1

REPORT INFORMATION
  Report Type: Spontaneous
  Country: US (occurrence: US)
  Receive Date: 20170303
  Receipt Date: 20170303
  Transmission Date: 20170428
  Serious: No
  Sender: FDA-Public Use
  Company Number: US-PFIZER INC-2017084072

PATIENT
  Age: 62 Year
  Sex: Female

DRUGS (9)
  1. CYCLOBENZAPRINE [Concomitant]
     Active Substance: CYCLOBENZAPRINE
     Indication: MUSCLE SPASMS
     Dosage: 10 MG, 1/2-1 TAB(S) ORALLY Q6H PRN
     Route: 048
  2. TRAZODONE [Concomitant]
     Active Substance: TRAZODONE HYDROCHLORIDE
     Dosage: 1 DF, DAILY (100) (2 HOURS BEFORE BEDTIME)
     Route: 048
  3. ALEVE [Concomitant]
     Active Substance: NAPROXEN SODIUM
     Indication: ARTHRITIS
     Dosage: 220 MG TABLET 2 TAB(S) ORALLY QD, PRN
     Route: 048
  4. NORCO [Concomitant]
     Active Substance: ACETAMINOPHEN\HYDROCODONE BITARTRATE
     Indication: PAIN
     Dosage: 1 DF, (325 MG-5 MG 1 TAB EVERY 6 HOURS AS NEEDED )
     Route: 048
  5. LYRICA [Suspect]
     Active Substance: PREGABALIN
     Indication: PLANTAR FASCIAL FIBROMATOSIS
     Dosage: 75 MG, 2X/DAY
     Route: 048
  6. TRAZODONE [Concomitant]
     Active Substance: TRAZODONE HYDROCHLORIDE
     Dosage: 100 MG, DAILY (2 HOURS BEFORE BEDTIME)
     Route: 048
  7. AMITRIPTYLINE [Concomitant]
     Active Substance: AMITRIPTYLINE
     Dosage: 25 MG, DAILY (2 HOURS BEFORE BEDTIME)
     Route: 048
  8. LISINOPRIL. [Concomitant]
     Active Substance: LISINOPRIL
     Dosage: 20 MG, DAILY
     Route: 048
  9. ZANTAC [Concomitant]
     Active Substance: RANITIDINE HYDROCHLORIDE
     Dosage: 1 DF, DAILY (QD)

REACTIONS (8)
  - Oropharyngeal pain [Unknown]
  - Rhinorrhoea [Unknown]
  - Cough [Unknown]
  - Muscle injury [Unknown]
  - Tendon pain [Unknown]
  - Tenderness [Unknown]
  - Product use issue [Unknown]
  - Dysphonia [Unknown]
